FAERS Safety Report 24765419 (Version 1)
Quarter: 2024Q4

REPORT INFORMATION
  Report Type: Spontaneous
  Country: US (occurrence: US)
  Receive Date: 20241223
  Receipt Date: 20241223
  Transmission Date: 20250115
  Serious: Yes (Life-Threatening, Other)
  Sender: ACCORD
  Company Number: US-Accord-461035

PATIENT
  Age: 64 Year
  Sex: Male

DRUGS (2)
  1. ROSUVASTATIN CALCIUM [Suspect]
     Active Substance: ROSUVASTATIN CALCIUM
     Indication: Hyperlipidaemia
     Dates: start: 2023, end: 202312
  2. DULAGLUTIDE [Concomitant]
     Active Substance: DULAGLUTIDE

REACTIONS (2)
  - Immune-mediated myositis [Recovering/Resolving]
  - Syncope [Unknown]

NARRATIVE: CASE EVENT DATE: 20230101
